FAERS Safety Report 4632647-1 (Version None)
Quarter: 2005Q2

REPORT INFORMATION
  Report Type: 
  Country: None (occurrence: None)
  Receive Date: 20050331
  Receipt Date: 20040907
  Transmission Date: 20051028
  Serious: Yes (Other)
  Sender: FDA-Public Use
  Company Number: 200414335BCC

PATIENT
  Age: 66 Year
  Sex: Male
  Weight: 72.5755 kg

DRUGS (5)
  1. ALEVE (CAPLET) [Suspect]
     Indication: HEADACHE
     Dosage: 220 MG, TID, ORAL
     Route: 048
     Dates: start: 20040905
  2. PLAVIX [Concomitant]
  3. BLOOD THINNER (NOS) [Concomitant]
  4. HIGH BLOOD PRESSURE MEDICATION (NOS) [Concomitant]
  5. HUMAN INSULIN [Concomitant]

REACTIONS (1)
  - BLOOD URINE PRESENT [None]
